FAERS Safety Report 9510515 (Version 2)
Quarter: 2013Q3

REPORT INFORMATION
  Report Type: Spontaneous
  Country: US (occurrence: US)
  Receive Date: 20130909
  Receipt Date: 20130909
  Transmission Date: 20140515
  Serious: No
  Sender: FDA-Public Use
  Company Number: US-ASTRAZENECA-2013SE47722

PATIENT
  Age: 49 Year
  Sex: Female
  Weight: 90.7 kg

DRUGS (7)
  1. SYMBICORT [Suspect]
     Indication: CHRONIC OBSTRUCTIVE PULMONARY DISEASE
     Dosage: 2 PUFFS BID
     Route: 055
     Dates: start: 201301, end: 201306
  2. COMBIVENT RESIMET [Concomitant]
     Indication: CHRONIC OBSTRUCTIVE PULMONARY DISEASE
     Dates: start: 2010
  3. ALBUTEROL PRO AIRE [Concomitant]
     Dosage: PRN
  4. XANAX [Concomitant]
     Indication: ANXIETY
     Dates: start: 2010
  5. XANAX [Concomitant]
     Indication: PANIC ATTACK
     Dates: start: 2010
  6. GABEPENTIN [Concomitant]
     Indication: MOOD SWINGS
     Dates: start: 2010
  7. SOMA [Concomitant]
     Indication: MUSCLE SPASMS
     Dates: start: 2012

REACTIONS (2)
  - Dyspnoea [Not Recovered/Not Resolved]
  - Drug dose omission [Not Recovered/Not Resolved]
